FAERS Safety Report 20319250 (Version 1)
Quarter: 2022Q1

REPORT INFORMATION
  Report Type: Spontaneous
  Country: ES (occurrence: ES)
  Receive Date: 20220110
  Receipt Date: 20220110
  Transmission Date: 20220423
  Serious: Yes (Hospitalization)
  Sender: FDA-Public Use
  Company Number: None

PATIENT
  Age: 88 Year
  Sex: Female

DRUGS (3)
  1. BUPRENORPHINE [Suspect]
     Active Substance: BUPRENORPHINE
     Indication: Pain
     Dosage: UNK (1/8 PATCH EVERY 4 DAYS)
     Route: 062
     Dates: start: 20210924, end: 20211104
  2. PREGABALIN [Suspect]
     Active Substance: PREGABALIN
     Indication: Pain
     Dosage: 100 MG, Q12H
     Route: 048
     Dates: start: 20181003, end: 20211111
  3. FUROSEMIDA                         /00032601/ [Concomitant]
     Indication: Cardiac failure
     Dosage: UNK
     Dates: start: 20170113

REACTIONS (2)
  - Cardiac failure congestive [Recovered/Resolved]
  - Wrong technique in product usage process [Recovered/Resolved]

NARRATIVE: CASE EVENT DATE: 20210924
